FAERS Safety Report 5682786-1 (Version None)
Quarter: 2008Q1

REPORT INFORMATION
  Report Type: 
  Country: None (occurrence: None)
  Receive Date: 20080327
  Receipt Date: 20080319
  Transmission Date: 20080703
  Serious: Yes (Hospitalization)
  Sender: FDA-Public Use
  Company Number: GB-ROCHE-554810

PATIENT
  Age: 29 Year
  Sex: Female
  Weight: 101.6 kg

DRUGS (14)
  1. ORLISTAT [Suspect]
     Indication: OBESITY
     Route: 048
     Dates: start: 20071025, end: 20080207
  2. VERAPAMIL [Concomitant]
     Indication: HYPERTENSION
     Dosage: DRUG NAME: VERAPAMIL MR
     Route: 048
  3. ACCOLATE [Concomitant]
     Indication: ASTHMA
     Dosage: REPORTED AS ACALATE
     Route: 048
  4. SOLIFENACIN SUCCINATE [Concomitant]
     Dosage: REPORTED AS SOLICEMACIN SUCCIMATE
     Route: 048
  5. DOMPERIDONE [Concomitant]
     Indication: GASTROINTESTINAL DISORDER
     Route: 048
  6. AMITRIPTYLINE HCL [Concomitant]
     Dosage: REPORTED AS AMYTRIPTLIN
     Route: 048
  7. ACETAZOLAMIDE [Concomitant]
     Indication: BENIGN INTRACRANIAL HYPERTENSION
     Route: 048
  8. OMEPRAZOLE [Concomitant]
     Indication: GASTROINTESTINAL DISORDER
     Dosage: DRUG NAME: OMEPRAZOLE EC
     Route: 048
  9. TRIMETOPRIM [Concomitant]
     Route: 048
  10. LEVOTHYROXINE SODIUM [Concomitant]
     Indication: HYPOTHYROIDISM
     Route: 048
  11. ACETAMINOPHEN [Concomitant]
     Indication: ANALGESIA
     Route: 048
  12. TRAMADOL HCL [Concomitant]
     Indication: ANALGESIA
     Route: 048
  13. ORAMORPH SR [Concomitant]
     Indication: ANALGESIA
     Route: 048
  14. PROSTAP [Concomitant]
     Indication: GENITAL DISORDER FEMALE
     Dosage: DOSAGE: 3.75MG IN 1ML
     Route: 030

REACTIONS (1)
  - OBSTRUCTIVE UROPATHY [None]
